FAERS Safety Report 18882165 (Version 2)
Quarter: 2023Q2

REPORT INFORMATION
  Report Type: Spontaneous
  Country: US (occurrence: US)
  Receive Date: 20210212
  Receipt Date: 20230420
  Transmission Date: 20230721
  Serious: No
  Sender: FDA-Public Use
  Company Number: US-BLUEPRINT MEDICINES CORPORATION-SP-US-2021-000114

PATIENT
  Sex: Female

DRUGS (3)
  1. AYVAKIT [Suspect]
     Active Substance: AVAPRITINIB
     Indication: Gastrointestinal stromal tumour
     Route: 048
     Dates: start: 20200214
  2. AYVAKIT [Suspect]
     Active Substance: AVAPRITINIB
     Indication: Gastrointestinal stromal tumour
     Dosage: 100MG EVERY OTHER DAY, ALTERNATING WITH 200MG
     Route: 065
     Dates: start: 20201116
  3. AYVAKIT [Suspect]
     Active Substance: AVAPRITINIB
     Dosage: 100MG EVERY OTHER DAY, ALTERNATING WITH 200MG
     Route: 065
     Dates: start: 20201116

REACTIONS (7)
  - Fall [Unknown]
  - Drug ineffective [Unknown]
  - Dizziness [Unknown]
  - Memory impairment [Unknown]
  - Anxiety [Unknown]
  - Neoplasm progression [Unknown]
  - Somnolence [Unknown]
